FAERS Safety Report 9788389 (Version 7)
Quarter: 2014Q2

REPORT INFORMATION
  Report Type: Spontaneous
  Country: JP (occurrence: JP)
  Receive Date: 20131230
  Receipt Date: 20140527
  Transmission Date: 20141212
  Serious: Yes (Hospitalization, Other)
  Sender: FDA-Public Use
  Company Number: JP-ASTRAZENECA-2013SE93604

PATIENT
  Age: 16596 Day
  Sex: Male
  Weight: 75 kg

DRUGS (9)
  1. NEXIUM [Suspect]
     Indication: PROPHYLAXIS AGAINST GASTROINTESTINAL ULCER
     Route: 048
     Dates: start: 20131107, end: 20131218
  2. METGLUCO [Suspect]
     Indication: DIABETES MELLITUS
     Dosage: 500-1000 MG DAILY
     Route: 048
     Dates: start: 20131125, end: 20131218
  3. OLMETEC [Suspect]
     Indication: HYPERTENSION
     Route: 048
     Dates: start: 20131119, end: 20131218
  4. LIPITOR [Suspect]
     Indication: HYPERLIPIDAEMIA
     Route: 048
     Dates: start: 20131108, end: 20131218
  5. PLAVIX [Suspect]
     Indication: CEREBRAL INFARCTION
     Route: 048
     Dates: start: 20131107, end: 20131218
  6. ELCATONIN [Suspect]
     Indication: PROPHYLAXIS
     Dosage: ON WEDNESDAYS AND FRIDAYS, 0, 20 OR 40 E DAILY
     Route: 058
     Dates: start: 20131129, end: 20131213
  7. LANTUS [Concomitant]
     Indication: DIABETES MELLITUS
     Dosage: 6 - 22 E DAILY
     Route: 058
     Dates: start: 20131108, end: 20131218
  8. BAYASPIRIN [Concomitant]
     Dosage: DOSE UNKNOWN
     Route: 048
     Dates: start: 20131107, end: 20131107
  9. BAYASPIRIN [Concomitant]
     Dosage: DOSE UNKNOWN
     Route: 048
     Dates: start: 20131109, end: 20131116

REACTIONS (18)
  - White blood cell count decreased [Recovering/Resolving]
  - Neutrophil count decreased [Recovering/Resolving]
  - Basophil count increased [Recovering/Resolving]
  - Blood glucose increased [Unknown]
  - C-reactive protein increased [Recovering/Resolving]
  - Eosinophil count increased [Recovered/Resolved]
  - Blood triglycerides increased [Unknown]
  - Glycosylated haemoglobin increased [Unknown]
  - Blood albumin decreased [Unknown]
  - Blood cholesterol decreased [Unknown]
  - Haematocrit decreased [Recovering/Resolving]
  - Haemoglobin decreased [Recovering/Resolving]
  - Low density lipoprotein increased [Unknown]
  - Low density lipoprotein decreased [Recovering/Resolving]
  - Monocyte count increased [Recovering/Resolving]
  - Platelet count increased [Unknown]
  - Protein total decreased [Unknown]
  - Blood potassium decreased [Recovering/Resolving]
